FAERS Safety Report 7530253-2 (Version None)
Quarter: 2011Q2

REPORT INFORMATION
  Report Type: 
  Country: None (occurrence: None)
  Receive Date: 20110526
  Receipt Date: 20110519
  Transmission Date: 20111010
  Serious: Yes (Other)
  Sender: FDA-Public Use
  Company Number: 2009SP023502

PATIENT
  Age: 27 Year
  Sex: Female
  Weight: 90.7194 kg

DRUGS (3)
  1. PHENTERMINE [Concomitant]
  2. NUVARING [Suspect]
     Indication: CONTRACEPTION
     Dosage: VAG
     Route: 067
     Dates: start: 20020301, end: 20030909
  3. NUVARING [Suspect]
     Indication: MENSTRUATION IRREGULAR
     Dosage: VAG
     Route: 067
     Dates: start: 20020301, end: 20030909

REACTIONS (22)
  - OROPHARYNGEAL PAIN [None]
  - KIDNEY INFECTION [None]
  - OVARIAN CYST [None]
  - ASTHMA [None]
  - CHOKING [None]
  - GASTROOESOPHAGEAL REFLUX DISEASE [None]
  - POSTPARTUM HAEMORRHAGE [None]
  - PHLEBITIS [None]
  - NEPHROLITHIASIS [None]
  - FIBRIN D DIMER INCREASED [None]
  - FACTOR V LEIDEN MUTATION [None]
  - PREGNANCY [None]
  - RETAINED PRODUCTS OF CONCEPTION [None]
  - THYROID DISORDER [None]
  - ANXIETY [None]
  - COSTOCHONDRITIS [None]
  - PLEURISY [None]
  - DEEP VEIN THROMBOSIS [None]
  - BLOOD DISORDER [None]
  - BLIGHTED OVUM [None]
  - RETAINED PLACENTA OR MEMBRANES [None]
  - LUNG DISORDER [None]
